FAERS Safety Report 10134882 (Version 1)
Quarter: 2014Q2

REPORT INFORMATION
  Report Type: Spontaneous
  Country: US (occurrence: US)
  Receive Date: 20140428
  Receipt Date: 20140428
  Transmission Date: 20141212
  Serious: Yes (Death)
  Sender: FDA-Public Use
  Company Number: US-BAXTER-2014BAX019898

PATIENT
  Age: 5 Year
  Sex: Female

DRUGS (5)
  1. VANCOMYCIN INJECTION, USP [Suspect]
     Indication: SEPSIS
     Route: 065
  2. CEFTRIAXONE INJECTION, USP (IN DEXTROSE) [Suspect]
     Indication: SEPSIS
     Route: 065
  3. DOXYCYCLINE [Suspect]
     Indication: SEPSIS
     Route: 065
  4. DOXYCYCLINE [Suspect]
     Indication: ROCKY MOUNTAIN SPOTTED FEVER
  5. CEPHALEXIN [Concomitant]
     Indication: PHARYNGITIS STREPTOCOCCAL
     Route: 065

REACTIONS (3)
  - Cardiac arrest [Fatal]
  - Brain death [Fatal]
  - Rocky mountain spotted fever [Fatal]
